FAERS Safety Report 10597557 (Version 1)
Quarter: 2014Q4

REPORT INFORMATION
  Report Type: Spontaneous
  Country: US (occurrence: None)
  Receive Date: 20141119
  Receipt Date: 20141119
  Transmission Date: 20150529
  Serious: Yes (Other)
  Sender: FDA-Public Use
  Company Number: HA14-407-AE

PATIENT
  Age: 79 Year
  Sex: Female
  Weight: 68.04 kg

DRUGS (11)
  1. TRAMADOL HCL [Suspect]
     Active Substance: TRAMADOL HYDROCHLORIDE
     Indication: PAIN
     Dosage: 1 TABLET, JAN 2014
     Route: 048
     Dates: start: 201401, end: 20141031
  2. HUMALOG KWIKPEN [Concomitant]
     Active Substance: INSULIN LISPRO
  3. SYNTHROID [Concomitant]
     Active Substance: LEVOTHYROXINE SODIUM
  4. XANAX [Concomitant]
     Active Substance: ALPRAZOLAM
  5. LISINOPRIL. [Concomitant]
     Active Substance: LISINOPRIL
  6. FENTANYL. [Concomitant]
     Active Substance: FENTANYL
  7. PYRIDIUM [Concomitant]
     Active Substance: PHENAZOPYRIDINE
  8. SMZ / TMP [Suspect]
     Active Substance: SULFAMETHOXAZOLE\TRIMETHOPRIM
     Indication: URINARY TRACT INFECTION
     Dosage: 1 TABLET ONLY
     Route: 048
     Dates: start: 201407
  9. LIPITOR GENERIC [Concomitant]
     Active Substance: ATORVASTATIN CALCIUM
  10. LANTUS SOLOSTAR [Concomitant]
     Active Substance: INSULIN GLARGINE
  11. STOOL SOFTNER DULCOLAX [Concomitant]

REACTIONS (5)
  - Blood urine present [None]
  - Cystitis [None]
  - Urinary tract infection [None]
  - Bladder spasm [None]
  - Malaise [None]

NARRATIVE: CASE EVENT DATE: 201407
